FAERS Safety Report 4787114-1 (Version None)
Quarter: 2005Q4

REPORT INFORMATION
  Report Type: 
  Country: None (occurrence: None)
  Receive Date: 20051004
  Receipt Date: 20050927
  Transmission Date: 20060501
  Serious: Yes (Other)
  Sender: FDA-Public Use
  Company Number: 200513299EU

PATIENT
  Age: 26 Year
  Sex: Male

DRUGS (1)
  1. NICORETTE [Suspect]
     Dosage: 5GUM CUMULATIVE DOSE
     Route: 002

REACTIONS (4)
  - ACUTE TONSILLITIS [None]
  - EATING DISORDER [None]
  - NECROTISING ULCERATIVE GINGIVOSTOMATITIS [None]
  - PHARYNGOLARYNGEAL PAIN [None]
